FAERS Safety Report 8074136-0 (Version None)
Quarter: 2011Q4

REPORT INFORMATION
  Report Type: 
  Country: None (occurrence: None)
  Receive Date: 20111221
  Receipt Date: 20110906
  Transmission Date: 20120403
  Serious: Yes (Other)
  Sender: FDA-Public Use
  Company Number: PHHY2011US22438

PATIENT
  Age: 64 Year
  Sex: Female
  Weight: 46.3 kg

DRUGS (14)
  1. ARANESP [Concomitant]
  2. VIVACTIV (VIVACTIV) [Concomitant]
  3. METOCLOPRAMID (METOCLOPRAMIDE HYDROCHLORIDE) [Concomitant]
  4. VITAMIN B12 [Concomitant]
  5. VITAMIN D [Concomitant]
  6. PREVACID [Concomitant]
  7. ANTIVERT [Concomitant]
  8. HYDREA [Concomitant]
  9. ASPIRIN [Concomitant]
  10. FOLIC ACID [Concomitant]
  11. BONIVA [Concomitant]
  12. COMBIVENT [Concomitant]
  13. EXJADE [Suspect]
     Indication: SICKLE CELL ANAEMIA
     Dosage: 1000 MG, DAILY, ORAL
     Route: 048
     Dates: start: 20071102
  14. TRUSOPT [Concomitant]

REACTIONS (4)
  - FACE OEDEMA [None]
  - ANGIOEDEMA [None]
  - LIP OEDEMA [None]
  - TONGUE OEDEMA [None]
